FAERS Safety Report 14204618 (Version 1)
Quarter: 2017Q4

REPORT INFORMATION
  Report Type: Spontaneous
  Country: US (occurrence: None)
  Receive Date: 20171118
  Receipt Date: 20171118
  Transmission Date: 20180321
  Serious: No
  Sender: FDA-Public Use
  Company Number: None

PATIENT
  Age: 69 Year
  Sex: Female

DRUGS (8)
  1. DILTIAZEM. [Concomitant]
     Active Substance: DILTIAZEM
  2. FEXOFENADINE [Concomitant]
     Active Substance: FEXOFENADINE\FEXOFENADINE HYDROCHLORIDE
  3. LASIX [Concomitant]
     Active Substance: FUROSEMIDE
  4. ATORVASTATIN [Suspect]
     Active Substance: ATORVASTATIN
     Dates: start: 201408, end: 20150122
  5. WARFARIN [Concomitant]
     Active Substance: WARFARIN
  6. ALBUTEROL. [Concomitant]
     Active Substance: ALBUTEROL
  7. LISINOPRIL. [Concomitant]
     Active Substance: LISINOPRIL
  8. ASPIRIN. [Concomitant]
     Active Substance: ASPIRIN

REACTIONS (3)
  - Hepatic enzyme increased [None]
  - Hepatic steatosis [None]
  - Drug-induced liver injury [None]

NARRATIVE: CASE EVENT DATE: 20150122
